FAERS Safety Report 20838442 (Version 1)
Quarter: 2022Q2

REPORT INFORMATION
  Report Type: Spontaneous
  Country: IN (occurrence: IN)
  Receive Date: 20220517
  Receipt Date: 20220517
  Transmission Date: 20220721
  Serious: Yes (Life-Threatening, Hospitalization)
  Sender: FDA-Public Use
  Company Number: IN-MYLANLABS-2022M1036373

PATIENT
  Age: 66 Year
  Sex: Male

DRUGS (4)
  1. DOBUTAMINE [Suspect]
     Active Substance: DOBUTAMINE HYDROCHLORIDE
     Indication: Cardiogenic shock
     Dosage: UNK, HIGHEST POSSIBLE DOSE
     Route: 042
     Dates: start: 201203
  2. EPINEPHRINE [Suspect]
     Active Substance: EPINEPHRINE
     Indication: Cardiogenic shock
     Dosage: UNK
     Route: 065
     Dates: start: 201203
  3. DOPAMINE [Suspect]
     Active Substance: DOPAMINE HYDROCHLORIDE
     Indication: Cardiogenic shock
     Dosage: UNK, HIGHEST POSSIBLE DOSE (INTRAVENOUS INFUSION)
     Route: 042
     Dates: start: 201203
  4. NOREPINEPHRINE [Suspect]
     Active Substance: NOREPINEPHRINE
     Indication: Cardiogenic shock
     Dosage: UNK
     Route: 065
     Dates: start: 201203

REACTIONS (1)
  - Drug ineffective [Unknown]

NARRATIVE: CASE EVENT DATE: 20120301
